FAERS Safety Report 17041533 (Version 1)
Quarter: 2019Q4

REPORT INFORMATION
  Report Type: Spontaneous
  Country: GB (occurrence: GB)
  Receive Date: 20191118
  Receipt Date: 20191118
  Transmission Date: 20200122
  Serious: Yes (Other)
  Sender: FDA-Public Use
  Company Number: GB-TEVA-2019-GB-1138124

PATIENT
  Age: 66 Year
  Sex: Male
  Weight: 73.47 kg

DRUGS (2)
  1. FOSFOMYCIN [Concomitant]
     Active Substance: FOSFOMYCIN
  2. TEVA UK TAMSULOSIN MODIFIED RELEASE [Suspect]
     Active Substance: TAMSULOSIN
     Indication: URINARY TRACT INFECTION
     Dosage: 1 DOSAGEFROM
     Route: 048
     Dates: start: 20191016, end: 20191017

REACTIONS (2)
  - Syncope [Recovering/Resolving]
  - Dizziness [Recovering/Resolving]

NARRATIVE: CASE EVENT DATE: 20191016
